FAERS Safety Report 18753683 (Version 1)
Quarter: 2021Q1

REPORT INFORMATION
  Report Type: Spontaneous
  Country: US (occurrence: US)
  Receive Date: 20210118
  Receipt Date: 20210118
  Transmission Date: 20210419
  Serious: Yes (Death, Hospitalization)
  Sender: FDA-Public Use
  Company Number: US-ABBVIE-21K-163-3735512-00

PATIENT
  Age: 57 Year
  Sex: Male

DRUGS (1)
  1. IMBRUVICA [Suspect]
     Active Substance: IBRUTINIB
     Indication: CHRONIC LYMPHOCYTIC LEUKAEMIA
     Route: 048
     Dates: start: 202001

REACTIONS (7)
  - Chronic lymphocytic leukaemia [Fatal]
  - Atrial fibrillation [Fatal]
  - Cerebral haemorrhage [Fatal]
  - Restlessness [Unknown]
  - Septic shock [Fatal]
  - Subdural haematoma [Fatal]
  - Pneumonia [Fatal]

NARRATIVE: CASE EVENT DATE: 202003
